FAERS Safety Report 23069708 (Version 1)
Quarter: 2023Q4

REPORT INFORMATION
  Report Type: Spontaneous
  Country: HR (occurrence: HR)
  Receive Date: 20231016
  Receipt Date: 20231016
  Transmission Date: 20240109
  Serious: Yes (Other)
  Sender: FDA-Public Use
  Company Number: None

PATIENT
  Age: 16 Year
  Sex: Female
  Weight: 110 kg

DRUGS (5)
  1. FEVARIN [Suspect]
     Active Substance: FLUVOXAMINE MALEATE
     Indication: Product used for unknown indication
     Dosage: 4.5MG, QD(45 TB X 100 MG1 BLISTER = 15 TAB)
     Route: 048
     Dates: start: 20230817, end: 20230817
  2. IBUPROFEN [Suspect]
     Active Substance: IBUPROFEN
     Indication: Product used for unknown indication
     Dosage: 1 BLISTER
     Route: 048
     Dates: start: 20230817, end: 20230817
  3. ALPRAZOLAM [Suspect]
     Active Substance: ALPRAZOLAM
     Indication: Product used for unknown indication
     Dosage: 37.5MG, QD (75 TAB X 0,5 MG, 1 BLISTER = 15 TAB)
     Route: 048
     Dates: start: 20230817, end: 20230817
  4. ARIPIPRAZOLE [Suspect]
     Active Substance: ARIPIPRAZOLE
     Indication: Product used for unknown indication
     Dosage: 180 MG, QD(18 TAB X 10 MG1 BLISTER=6 TAB)
     Route: 048
     Dates: start: 20230817, end: 20230817
  5. PRAZINE (PROMAZINE HYDROCHLORIDE) [Suspect]
     Active Substance: PROMAZINE HYDROCHLORIDE
     Indication: Product used for unknown indication
     Dosage: 1000MG, QD,(40 TBL X 25 MG1 BLISTER = 10 TAB)
     Route: 048
     Dates: start: 20230817, end: 20230817

REACTIONS (3)
  - Altered state of consciousness [Unknown]
  - Suicide attempt [Unknown]
  - Intentional overdose [Unknown]

NARRATIVE: CASE EVENT DATE: 20230817
